FAERS Safety Report 23209851 (Version 1)
Quarter: 2023Q4

REPORT INFORMATION
  Report Type: Spontaneous
  Country: ES (occurrence: ES)
  Receive Date: 20231121
  Receipt Date: 20231121
  Transmission Date: 20240110
  Serious: Yes (Hospitalization, Other)
  Sender: FDA-Public Use
  Company Number: ES-AEMPS-1447096

PATIENT
  Age: 21 Year
  Sex: Male

DRUGS (7)
  1. VALPROIC ACID [Suspect]
     Active Substance: VALPROIC ACID
     Indication: Seizure
     Dosage: UNK
     Route: 048
     Dates: start: 20230818, end: 20230907
  2. MEROPENEM [Suspect]
     Active Substance: MEROPENEM
     Indication: Graft infection
     Dosage: UNK
     Route: 042
     Dates: start: 20230901, end: 20230919
  3. DAPTOMYCIN [Suspect]
     Active Substance: DAPTOMYCIN
     Indication: Graft infection
     Dosage: UNK
     Route: 042
     Dates: start: 20230901, end: 20230908
  4. TACROLIMUS [Suspect]
     Active Substance: TACROLIMUS
     Indication: Transplant rejection
     Dosage: UNK
     Route: 048
     Dates: start: 20230601, end: 20230831
  5. METAMIZOL [Suspect]
     Active Substance: METAMIZOLE SODIUM
     Indication: Abdominal pain
     Dosage: UNK
     Route: 042
     Dates: start: 20230902, end: 20230925
  6. ISONIAZID [Suspect]
     Active Substance: ISONIAZID
     Indication: Latent tuberculosis
     Dosage: UNK
     Route: 048
     Dates: start: 20230624, end: 20230923
  7. RIFAMPIN [Suspect]
     Active Substance: RIFAMPIN
     Indication: Latent tuberculosis
     Dosage: UNK
     Route: 048
     Dates: start: 20230624, end: 20230908

REACTIONS (2)
  - Hepatitis cholestatic [Recovering/Resolving]
  - Eosinophilia [Recovered/Resolved]

NARRATIVE: CASE EVENT DATE: 20230905
